FAERS Safety Report 6008759-7 (Version None)
Quarter: 2008Q4

REPORT INFORMATION
  Report Type: 
  Country: None (occurrence: None)
  Receive Date: 20081217
  Receipt Date: 20080501
  Transmission Date: 20090506
  Serious: Yes (Death)
  Sender: FDA-Public Use
  Company Number: US-BAXTER-2008BH010522

PATIENT

DRUGS (4)
  1. IMMUNE GLOBULIN INTRAVENOUS (HUMAN) [Suspect]
     Indication: PRIMARY IMMUNODEFICIENCY SYNDROME
     Route: 042
     Dates: start: 20080101
  2. CARIMUNE NF [Suspect]
     Indication: PRIMARY IMMUNODEFICIENCY SYNDROME
     Dosage: DOSE UNIT:UNKNOWN
     Route: 042
     Dates: start: 20080101
  3. HYDROCORTISONE [Concomitant]
     Indication: PREMEDICATION
     Route: 065
  4. PREDNISONE TAB [Concomitant]
     Indication: PREMEDICATION
     Route: 065

REACTIONS (2)
  - DEATH [None]
  - DRUG INTOLERANCE [None]
